FAERS Safety Report 8237525-7 (Version None)
Quarter: 2012Q1

REPORT INFORMATION
  Report Type: 
  Country: None (occurrence: None)
  Receive Date: 20120327
  Receipt Date: 20120320
  Transmission Date: 20120608
  Serious: Yes (Hospitalization, Other)
  Sender: FDA-Public Use
  Company Number: PHHY2012CZ017851

PATIENT
  Sex: Male

DRUGS (8)
  1. OMEPRAZOLE [Concomitant]
     Indication: DUODENAL ULCER
     Dosage: 20 MG, (1-0-0)
     Route: 042
  2. METOPROLOL SUCCINATE [Concomitant]
     Dosage: 50 (1-0-0)
  3. CODEINE [Concomitant]
  4. EVEROLIMUS [Suspect]
  5. INHIBACE [Concomitant]
     Dosage: 2.5 MG, (1-0-0)
  6. IBUPROFEN [Concomitant]
  7. FRAXIPARIN [Concomitant]
  8. ALLOPURINOL [Concomitant]
     Dosage: 300 MG, (1-0-0)

REACTIONS (11)
  - CHLAMYDIAL INFECTION [None]
  - ABDOMINAL PAIN [None]
  - DIARRHOEA [None]
  - PYREXIA [None]
  - COUGH [None]
  - NEOPLASM PROGRESSION [None]
  - C-REACTIVE PROTEIN INCREASED [None]
  - METASTASES TO LUNG [None]
  - VOMITING [None]
  - NEOPLASM MALIGNANT [None]
  - INFLAMMATION [None]
